FAERS Safety Report 24643752 (Version 3)
Quarter: 2024Q4

REPORT INFORMATION
  Report Type: Spontaneous
  Country: DE (occurrence: DE)
  Receive Date: 20241120
  Receipt Date: 20241219
  Transmission Date: 20250115
  Serious: Yes (Death, Other)
  Sender: CSL BEHRING
  Company Number: DE-LEO Pharma-374579

PATIENT
  Age: 72 Year
  Sex: Male
  Weight: 71 kg

DRUGS (8)
  1. ALBUMIN HUMAN [Suspect]
     Active Substance: ALBUMIN HUMAN
     Indication: Hypovolaemia
     Dosage: 50 G/L 500 ML
     Route: 048
  2. PROTAMINE SULFATE [Suspect]
     Active Substance: PROTAMINE SULFATE
     Indication: Heparin neutralisation therapy
     Dosage: 7000 IU, SINGLE (POSOLOGY INFORMATION: 7,000 IU ANTIDOTE/5ML / 2X 50,000 IU / SINGLE DOSE / I.V. )
     Route: 042
  3. PROTAMINE SULFATE [Suspect]
     Active Substance: PROTAMINE SULFATE
     Dosage: 7000 IU, SINGLE (POSOLOGY INFORMATION: 7,000 IU ANTIDOTE/5ML / 2X 50,000 IU / SINGLE DOSE / I.V. )
     Route: 042
     Dates: start: 20241018
  4. AMLODIPINE BESYLATE [Concomitant]
     Active Substance: AMLODIPINE BESYLATE
     Indication: Hypertension
     Dosage: 5 MG TABLETS, 1-0-0.5
     Route: 048
  5. METOPROLOL [Concomitant]
     Active Substance: METOPROLOL
     Indication: Hypertension
     Dosage: 47.5 MG TABLETS, 1-0-0.5
     Route: 048
  6. METOPROLOL [Concomitant]
     Active Substance: METOPROLOL
     Indication: Cardiac failure
  7. DAPAGLIFLOZIN [Concomitant]
     Active Substance: DAPAGLIFLOZIN
     Indication: Cardiac failure
     Dosage: 10 MG TABLETS, 1-0-0
     Route: 048
  8. EZETIMIBE [Concomitant]
     Active Substance: EZETIMIBE
     Indication: Hypercholesterolaemia
     Dosage: 10 MG TABLETS, 0-0-1
     Route: 048

REACTIONS (4)
  - Anaphylactic reaction [Fatal]
  - Multiple organ dysfunction syndrome [Fatal]
  - Disseminated intravascular coagulation [Fatal]
  - Urticaria [Fatal]

NARRATIVE: CASE EVENT DATE: 20241018
